FAERS Safety Report 4988888-7 (Version None)
Quarter: 2006Q2

REPORT INFORMATION
  Report Type: 
  Country: None (occurrence: None)
  Receive Date: 20060425
  Receipt Date: 20060412
  Transmission Date: 20061013
  Serious: Yes (Other)
  Sender: FDA-Public Use
  Company Number: 200612331BWH

PATIENT
  Age: 43 Year
  Sex: Female

DRUGS (1)
  1. AVELOX [Suspect]
     Indication: PHARYNGOLARYNGEAL PAIN
     Dosage: 400 MG, QD
     Dates: start: 20060301

REACTIONS (13)
  - BLOOD PRESSURE INCREASED [None]
  - DYSPNOEA [None]
  - FEELING ABNORMAL [None]
  - HEADACHE [None]
  - HEART RATE INCREASED [None]
  - HYPERHIDROSIS [None]
  - IMPAIRED WORK ABILITY [None]
  - INSOMNIA [None]
  - MALAISE [None]
  - TREMOR [None]
  - VISUAL ACUITY REDUCED [None]
  - VISUAL FIELD DEFECT [None]
  - WEIGHT DECREASED [None]
